FAERS Safety Report 4586755-4 (Version None)
Quarter: 2005Q1

REPORT INFORMATION
  Report Type: 
  Country: None (occurrence: None)
  Receive Date: 20050214
  Receipt Date: 20050131
  Transmission Date: 20050727
  Serious: Yes (Other)
  Sender: FDA-Public Use
  Company Number: 2005024463

PATIENT
  Age: 44 Year
  Sex: Female
  Weight: 59.4212 kg

DRUGS (7)
  1. GEODON [Suspect]
     Indication: MOOD SWINGS
     Dosage: 20 MG (20 MG, 1 IN 1 D), ORAL
     Route: 048
     Dates: start: 20050119
  2. METOPROLOL SUCCINATE [Suspect]
     Indication: HEART RATE INCREASED
     Dates: start: 20040101
  3. METOPROLOL SUCCINATE [Suspect]
     Indication: HYPERTENSION
     Dates: start: 20040101
  4. ALL OTHER THERAPEUTIC PRODUCTS (ALL OTHER THERAPEUTIC PRODUCTS) [Suspect]
     Indication: ILL-DEFINED DISORDER
  5. CEFAZOLIN SODIUM [Suspect]
     Indication: ILL-DEFINED DISORDER
  6. ALPRAZOLAM [Concomitant]
  7. ZOLPIDEM TARTRATE [Concomitant]

REACTIONS (4)
  - PRURITUS [None]
  - RASH ERYTHEMATOUS [None]
  - SKIN BURNING SENSATION [None]
  - URTICARIA GENERALISED [None]
